FAERS Safety Report 6859908-X (Version None)
Quarter: 2010Q3

REPORT INFORMATION
  Report Type: 
  Country: None (occurrence: None)
  Receive Date: 20100720
  Receipt Date: 20100713
  Transmission Date: 20110219
  Serious: Yes (Hospitalization)
  Sender: FDA-Public Use
  Company Number: US-BRACCO-004118

PATIENT
  Age: 73 Year
  Sex: Male

DRUGS (3)
  1. ISOVUE-128 [Suspect]
     Indication: ARTERIOGRAM
     Route: 065
     Dates: start: 20100204, end: 20100204
  2. ISOVUE-128 [Suspect]
     Indication: ANGIOGRAM CEREBRAL
     Route: 065
     Dates: start: 20100204, end: 20100204
  3. ISOVUE-128 [Suspect]
     Indication: PERIPHERAL VASCULAR DISORDER
     Route: 065
     Dates: start: 20100204, end: 20100204

REACTIONS (2)
  - CEREBROVASCULAR ACCIDENT [None]
  - DRUG ADMINISTRATION ERROR [None]
